FAERS Safety Report 9108329 (Version 1)
Quarter: 2013Q1

REPORT INFORMATION
  Report Type: Spontaneous
  Country: GB (occurrence: GB)
  Receive Date: 20130222
  Receipt Date: 20130222
  Transmission Date: 20140127
  Serious: Yes (Death, Hospitalization)
  Sender: FDA-Public Use
  Company Number: GB-MYLANLABS-2013S1003256

PATIENT
  Age: 6 Decade
  Sex: Male

DRUGS (4)
  1. SIMVASTATIN [Suspect]
     Indication: ANGINA PECTORIS
     Dosage: 40MG
     Route: 065
     Dates: start: 2005, end: 2005
  2. ATORVASTATIN [Suspect]
     Indication: ANGINA PECTORIS
     Dosage: 40MG; DOSE HALVED IN AUG 2007
     Route: 065
     Dates: start: 2005, end: 200708
  3. ATORVASTATIN [Suspect]
     Indication: ANGINA PECTORIS
     Dosage: 20MG
     Route: 065
     Dates: start: 200708, end: 2008
  4. EZETIMIBE [Suspect]
     Indication: ANGINA PECTORIS
     Dosage: 10MG
     Route: 065
     Dates: start: 2008, end: 200811

REACTIONS (4)
  - Motor neurone disease [Not Recovered/Not Resolved]
  - Hepatic function abnormal [Recovered/Resolved]
  - Respiratory failure [Fatal]
  - Myocardial infarction [Fatal]
